FAERS Safety Report 5825832-4 (Version None)
Quarter: 2008Q3

REPORT INFORMATION
  Report Type: 
  Country: None (occurrence: None)
  Receive Date: 20080729
  Receipt Date: 20080722
  Transmission Date: 20090109
  Serious: Yes (Hospitalization)
  Sender: FDA-Public Use
  Company Number: JP-AVENTIS-200812135JP

PATIENT
  Age: 70 Year
  Sex: Male
  Weight: 61 kg

DRUGS (3)
  1. TAXOTERE [Suspect]
     Route: 041
     Dates: start: 20030317, end: 20070914
  2. RADIOTHERAPY [Concomitant]
     Dosage: DOSE: 40 GY/TOTAL
  3. PROLEUKIN [Concomitant]
     Dosage: DOSE: 400000 UNITS/DAY
     Route: 051
     Dates: start: 20040611, end: 20040617

REACTIONS (1)
  - PLEURAL EFFUSION [None]
